FAERS Safety Report 7504210-6 (Version None)
Quarter: 2011Q2

REPORT INFORMATION
  Report Type: 
  Country: None (occurrence: None)
  Receive Date: 20110525
  Receipt Date: 20110518
  Transmission Date: 20111010
  Serious: Yes (Disabling, Other)
  Sender: FDA-Public Use
  Company Number: JP-PFIZER INC-2011090124

PATIENT
  Age: 76 Year
  Sex: Female
  Weight: 63 kg

DRUGS (7)
  1. LYRICA [Suspect]
     Indication: BACK PAIN
     Dosage: 75 MG, 2X/DAY
     Route: 048
     Dates: start: 20110415, end: 20110421
  2. OMEPRAZOLE [Concomitant]
     Dosage: 20 MG, 1X/DAY
     Route: 048
     Dates: start: 20081009
  3. NORVASC [Concomitant]
     Indication: HYPERTENSION
     Dosage: 5 MG, 1X/DAY
     Route: 048
  4. LIVOSTIN [Concomitant]
     Dosage: UNK
     Route: 047
  5. BETAMETHASONE [Concomitant]
     Dosage: UNK
  6. THEO-DUR [Concomitant]
     Dosage: 100 MG, 2X/DAY
     Route: 048
  7. BONALFA [Concomitant]
     Dosage: UNK
     Route: 061
     Dates: start: 20050217

REACTIONS (4)
  - BLOOD PRESSURE DECREASED [None]
  - GAIT DISTURBANCE [None]
  - PUSTULAR PSORIASIS [None]
  - DIZZINESS [None]
